FAERS Safety Report 8397095-X (Version None)
Quarter: 2012Q2

REPORT INFORMATION
  Report Type: 
  Country: None (occurrence: None)
  Receive Date: 20120530
  Receipt Date: 20120320
  Transmission Date: 20120825
  Serious: Yes (Hospitalization)
  Sender: FDA-Public Use
  Company Number: CHPA2012US004763

PATIENT
  Age: 43 Year
  Sex: Male

DRUGS (11)
  1. XANAX [Concomitant]
     Indication: PSYCHIATRIC SYMPTOM
     Dosage: .25 MG, QD
     Route: 048
     Dates: start: 20030101
  2. TRILECTAL [Concomitant]
     Indication: PSYCHIATRIC SYMPTOM
     Dosage: 900 MG, QD
     Route: 048
  3. LATUDA [Concomitant]
     Indication: PSYCHIATRIC SYMPTOM
     Dosage: 60 MG, QD
     Route: 048
     Dates: start: 20110101
  4. LAMICTAL [Concomitant]
     Indication: PSYCHIATRIC SYMPTOM
     Dosage: 600 MG, BID
     Route: 048
  5. AMBIEN [Concomitant]
     Indication: SLEEP DISORDER
     Dosage: 12.5 MG, QD
     Route: 048
     Dates: start: 20030101
  6. TOPAMAX [Concomitant]
     Dosage: 100 MG, PRN
     Route: 048
     Dates: start: 20080101
  7. REGELAN [Concomitant]
     Dosage: UNK, UNK
  8. EXCEDRIN (MIGRAINE) [Suspect]
     Indication: MIGRAINE
     Dosage: 2 DF, QD
     Route: 048
     Dates: start: 20110101
  9. XANAX [Concomitant]
     Indication: PSYCHIATRIC SYMPTOM
     Dosage: 1 MG, TID
     Route: 048
     Dates: start: 20030101
  10. FENTANYL-100 [Concomitant]
     Dosage: UNK, UNK
  11. VICODIN [Concomitant]
     Indication: PAIN
     Dosage: 1000 MG, PRN
     Route: 048
     Dates: start: 20080101

REACTIONS (2)
  - MIGRAINE [None]
  - OVERDOSE [None]
